FAERS Safety Report 9289358 (Version 2)
Quarter: 2013Q2

REPORT INFORMATION
  Report Type: Report from Study
  Country: US (occurrence: US)
  Receive Date: 20130514
  Receipt Date: 20130522
  Transmission Date: 20140414
  Serious: Yes (Other)
  Sender: FDA-Public Use
  Company Number: US-CELGENEUS-163-21880-13044978

PATIENT
  Age: 75 Year
  Sex: Male
  Weight: 95.39 kg

DRUGS (40)
  1. REVLIMID [Suspect]
     Indication: PLASMA CELL MYELOMA
     Dosage: 10 MILLIGRAM
     Route: 048
     Dates: start: 20101209, end: 20130426
  2. THALOMID [Suspect]
     Indication: PLASMA CELL MYELOMA
     Dosage: 50 MILLIGRAM
     Route: 048
     Dates: start: 20100813
  3. THALOMID [Suspect]
     Dosage: 100 MILLIGRAM
     Route: 048
     Dates: start: 20100827
  4. THALOMID [Suspect]
     Dosage: 150 MILLIGRAM
     Route: 048
     Dates: start: 20100903, end: 20101209
  5. DEXAMETHASONE [Concomitant]
     Indication: PLASMA CELL MYELOMA
     Dosage: 40 MILLIGRAM
     Route: 048
     Dates: start: 20100807
  6. DEXAMETHASONE [Concomitant]
     Dosage: 20 MILLIGRAM
     Route: 048
  7. COUMADIN [Concomitant]
     Indication: DEEP VEIN THROMBOSIS
     Dosage: 4-6 MG
     Route: 048
     Dates: start: 20101018
  8. COUMADIN [Concomitant]
     Indication: PULMONARY EMBOLISM
  9. ENOXAPARIN SODIUM [Concomitant]
     Indication: DEEP VEIN THROMBOSIS
     Route: 065
     Dates: start: 20101018
  10. ENOXAPARIN SODIUM [Concomitant]
     Indication: PULMONARY EMBOLISM
  11. ESCITALOPRAM OXALATE [Concomitant]
     Indication: DEPRESSION
     Route: 065
     Dates: start: 20121114
  12. ZOLEDRONIC ACID [Concomitant]
     Indication: PLASMA CELL MYELOMA
     Route: 065
     Dates: start: 20120720, end: 20130410
  13. ZOLEDRONIC ACID [Concomitant]
     Indication: BONE DISORDER
  14. ALLOPURINOL [Concomitant]
     Indication: GOUT
     Dosage: 300 MILLIGRAM
     Route: 048
  15. FISH OIL [Concomitant]
     Indication: HYPERLIPIDAEMIA
     Dosage: 1200 MILLIGRAM
     Route: 048
  16. DEXILANT [Concomitant]
     Indication: GASTROOESOPHAGEAL REFLUX DISEASE
     Dosage: 60 MILLIGRAM
     Route: 048
  17. FUROSEMIDE [Concomitant]
     Indication: FLUID RETENTION
     Dosage: 40 MILLIGRAM
     Route: 048
  18. GABAPENTIN [Concomitant]
     Indication: NEUROPATHY PERIPHERAL
     Route: 048
  19. HYDROCODONE-ACETAMINOPHEN [Concomitant]
     Indication: PAIN
     Dosage: 1-2 (10-325MG) TABLETS
     Route: 048
  20. HYDROCODONE-ACETAMINOPHEN [Concomitant]
     Indication: MUSCLE SPASMS
  21. KETOROLAC TROMETHAMINE [Concomitant]
     Indication: PAIN
     Route: 048
  22. KETOROLAC TROMETHAMINE [Concomitant]
     Indication: INFLAMMATION
  23. LEVOTHYROID [Concomitant]
     Indication: HYPOTHYROIDISM
     Dosage: 100 MICROGRAM
     Route: 048
  24. MELOXICAM [Concomitant]
     Indication: PAIN
     Dosage: 15 MILLIGRAM
     Route: 048
  25. MELOXICAM [Concomitant]
     Indication: MUSCLE SPASMS
  26. METHYLPHENIDATE HCL [Concomitant]
     Indication: TREMOR
     Dosage: 5 MILLIGRAM
     Route: 048
  27. NAMENDA [Concomitant]
     Indication: DEMENTIA
     Dosage: 20 MILLIGRAM
     Route: 048
  28. NAMENDA [Concomitant]
     Indication: AMNESIA
  29. NIASPAN [Concomitant]
     Indication: HYPERLIPIDAEMIA
     Dosage: 1000 MILLIGRAM
     Route: 048
  30. POTASSIUM CHLORIDE [Concomitant]
     Indication: VITAMIN K
     Dosage: 10 MILLIEQUIVALENTS
     Route: 048
  31. PRIMIDONE [Concomitant]
     Indication: TREMOR
     Route: 048
  32. PROCHLORPERAZINE MALEATE [Concomitant]
     Indication: NAUSEA
     Dosage: 40 MILLIGRAM
     Route: 048
  33. PROPRANOLOL HCL [Concomitant]
     Indication: TREMOR
     Dosage: 120 MILLIGRAM
     Route: 048
  34. SIMVASTATIN [Concomitant]
     Indication: HYPERLIPIDAEMIA
     Dosage: 20 MILLIGRAM
     Route: 048
  35. SOMA [Concomitant]
     Indication: PAIN
     Dosage: 700 MILLIGRAM
     Route: 048
  36. SOMA [Concomitant]
     Indication: MUSCLE SPASMS
  37. TUMS [Concomitant]
     Indication: GASTROOESOPHAGEAL REFLUX DISEASE
     Dosage: 1500 MILLIGRAM
     Route: 048
  38. TUMS [Concomitant]
     Indication: MINERAL SUPPLEMENTATION
  39. VITAMIN D-3 [Concomitant]
     Indication: VITAMIN D DEFICIENCY
     Dosage: 5000 UNITS
     Route: 048
  40. ZOFRAN [Concomitant]
     Indication: NAUSEA
     Dosage: 24 MILLIGRAM
     Route: 048

REACTIONS (3)
  - Basal cell carcinoma [Recovered/Resolved]
  - Squamous cell carcinoma of skin [Recovered/Resolved]
  - Basal cell carcinoma [Recovered/Resolved]
